FAERS Safety Report 26056869 (Version 1)
Quarter: 2025Q4

REPORT INFORMATION
  Report Type: Report from Study
  Country: CA (occurrence: CA)
  Receive Date: 20251118
  Receipt Date: 20251118
  Transmission Date: 20260117
  Serious: No
  Sender: BIOGEN
  Company Number: CA-BIOGEN-2091001

PATIENT
  Sex: Male

DRUGS (1)
  1. TYSABRI [Suspect]
     Active Substance: NATALIZUMAB
     Indication: Multiple sclerosis
     Dosage: EXPIRY DATE: 28FEB2027
     Dates: start: 20150126

REACTIONS (1)
  - Drug hypersensitivity [Not Recovered/Not Resolved]
